FAERS Safety Report 18607119 (Version 3)
Quarter: 2021Q1

REPORT INFORMATION
  Report Type: Spontaneous
  Country: US (occurrence: US)
  Receive Date: 20201211
  Receipt Date: 20210128
  Transmission Date: 20210419
  Serious: Yes (Other)
  Sender: FDA-Public Use
  Company Number: US-PFIZER INC-2020487786

PATIENT
  Age: 35 Year
  Sex: Female

DRUGS (1)
  1. XELJANZ [Suspect]
     Active Substance: TOFACITINIB CITRATE
     Dosage: 5 MG, UNK
     Dates: start: 202011

REACTIONS (10)
  - Fatigue [Unknown]
  - Upper-airway cough syndrome [Unknown]
  - Splenomegaly [Unknown]
  - COVID-19 [Unknown]
  - Headache [Unknown]
  - Sputum discoloured [Unknown]
  - Nasal congestion [Unknown]
  - Feeling abnormal [Unknown]
  - Paranasal sinus discomfort [Unknown]
  - Malaise [Unknown]

NARRATIVE: CASE EVENT DATE: 2020
